FAERS Safety Report 26126481 (Version 1)
Quarter: 2025Q4

REPORT INFORMATION
  Report Type: Spontaneous
  Country: US (occurrence: None)
  Receive Date: 20251205
  Receipt Date: 20251205
  Transmission Date: 20260118
  Serious: Yes (Hospitalization)
  Sender: FDA-CTU
  Company Number: None

PATIENT
  Age: 43 Year
  Sex: Female

DRUGS (15)
  1. ALBUTEROL [Suspect]
     Active Substance: ALBUTEROL
  2. AMLODIPINE BESYLATE [Suspect]
     Active Substance: AMLODIPINE BESYLATE
  3. ARMODAFINIL [Suspect]
     Active Substance: ARMODAFINIL
  4. ASPIRIN 81MG [Suspect]
     Active Substance: ASPIRIN
  5. BUSPIRONE [Suspect]
     Active Substance: BUSPIRONE HYDROCHLORIDE
  6. COENZYME Q10 [Suspect]
     Active Substance: DIETARY SUPPLEMENT\UBIDECARENONE
  7. CYANOCOBALAMIN [Suspect]
     Active Substance: CYANOCOBALAMIN
  8. ELIQUIS [Suspect]
     Active Substance: APIXABAN
  9. FAMOTIDINE [Suspect]
     Active Substance: FAMOTIDINE
  10. FIASP [Suspect]
     Active Substance: INSULIN ASPART
  11. FLUCONAZOLE [Suspect]
     Active Substance: FLUCONAZOLE
  12. GABAPENTIN [Suspect]
     Active Substance: GABAPENTIN
  13. LEVAQUIN [Suspect]
     Active Substance: LEVOFLOXACIN
  14. LORAZEPAM [Suspect]
     Active Substance: LORAZEPAM
  15. METOCLOPRAMIDE [Suspect]
     Active Substance: METOCLOPRAMIDE

REACTIONS (1)
  - Pulmonary oedema [None]

NARRATIVE: CASE EVENT DATE: 20251120
